FAERS Safety Report 4314453-0 (Version None)
Quarter: 2004Q1

REPORT INFORMATION
  Report Type: 
  Country: None (occurrence: None)
  Receive Date: 20040309
  Receipt Date: 20040130
  Transmission Date: 20041129
  Serious: Yes (Death)
  Sender: FDA-Public Use
  Company Number: FR-ROCHE-357616

PATIENT
  Age: 44 Year
  Sex: Male
  Weight: 98 kg

DRUGS (7)
  1. PEGASYS [Suspect]
     Indication: HEPATIC CIRRHOSIS
     Route: 058
     Dates: start: 20030512, end: 20040115
  2. COPEGUS [Concomitant]
     Indication: DRUG USE FOR UNKNOWN INDICATION
     Route: 065
  3. ANTIDEPRESSANT [Concomitant]
     Indication: DRUG USE FOR UNKNOWN INDICATION
     Route: 065
  4. STILNOX [Concomitant]
     Route: 048
     Dates: start: 20030512, end: 20040128
  5. AVLOCARDYL [Concomitant]
     Indication: PORTAL HYPERTENSION
     Route: 048
     Dates: start: 20030512, end: 20040128
  6. SEROPRAM [Concomitant]
     Route: 048
     Dates: start: 20030512, end: 20040128
  7. REBETOL [Concomitant]
     Indication: HEPATITIS C
     Route: 048
     Dates: start: 20030512, end: 20040128

REACTIONS (1)
  - GASTRIC PERFORATION [None]
